FAERS Safety Report 23231801 (Version 1)
Quarter: 2023Q4

REPORT INFORMATION
  Report Type: Spontaneous
  Country: AT (occurrence: AT)
  Receive Date: 20231127
  Receipt Date: 20231127
  Transmission Date: 20240110
  Serious: Yes (Other)
  Sender: FDA-Public Use
  Company Number: AT-AVEO ONCOLOGY-2023-AVEO-AT000920

PATIENT

DRUGS (5)
  1. FOTIVDA [Suspect]
     Active Substance: TIVOZANIB HYDROCHLORIDE
     Indication: Renal cell carcinoma
     Dosage: UNK
     Route: 065
     Dates: end: 202308
  2. NIVOLUMAB [Concomitant]
     Active Substance: NIVOLUMAB
     Indication: Renal cell carcinoma
     Dosage: UNK
     Route: 065
     Dates: start: 202109
  3. IPILIMUMAB [Concomitant]
     Active Substance: IPILIMUMAB
     Indication: Renal cell carcinoma
     Dosage: CYCLE 1
     Route: 065
     Dates: start: 202109, end: 2021
  4. IPILIMUMAB [Concomitant]
     Active Substance: IPILIMUMAB
     Dosage: CYCLE 2
     Route: 065
     Dates: start: 2021, end: 202112
  5. IPILIMUMAB [Concomitant]
     Active Substance: IPILIMUMAB
     Dosage: UNKNOWN DOSE
     Route: 065

REACTIONS (2)
  - Malignant neoplasm progression [Unknown]
  - Diarrhoea [Unknown]

NARRATIVE: CASE EVENT DATE: 20210101
